FAERS Safety Report 4292902-4 (Version None)
Quarter: 2004Q1

REPORT INFORMATION
  Report Type: 
  Country: None (occurrence: None)
  Receive Date: 20040212
  Receipt Date: 20030722
  Transmission Date: 20041129
  Serious: No
  Sender: FDA-Public Use
  Company Number: US-GLAXOSMITHKLINE-A0417825A

PATIENT
  Age: 48 Year
  Sex: Male

DRUGS (3)
  1. PAXIL [Suspect]
     Dosage: 20MG PER DAY
     Route: 048
     Dates: start: 20021101, end: 20030501
  2. PEG-INTRON [Concomitant]
  3. REBETOL [Concomitant]

REACTIONS (3)
  - DISSOCIATION [None]
  - LOSS OF LIBIDO [None]
  - THINKING ABNORMAL [None]
